FAERS Safety Report 14775156 (Version 2)
Quarter: 2018Q3

REPORT INFORMATION
  Report Type: Spontaneous
  Country: DE (occurrence: DE)
  Receive Date: 20180418
  Receipt Date: 20180925
  Transmission Date: 20181010
  Serious: Yes (Hospitalization)
  Sender: FDA-Public Use
  Company Number: DE-TEVA-2018-DE-883018

PATIENT
  Age: 52 Year
  Sex: Female

DRUGS (1)
  1. TOLTERODIN ARISTO 4 MG [Suspect]
     Active Substance: TOLTERODINE TARTRATE
     Route: 048
     Dates: start: 20180407

REACTIONS (4)
  - Chills [Recovering/Resolving]
  - Pyrexia [Recovering/Resolving]
  - Headache [Recovering/Resolving]
  - Arthralgia [Recovering/Resolving]

NARRATIVE: CASE EVENT DATE: 20180407
